FAERS Safety Report 7219770-2 (Version None)
Quarter: 2010Q4

REPORT INFORMATION
  Report Type: 
  Country: None (occurrence: None)
  Receive Date: 20101126
  Receipt Date: 20100920
  Transmission Date: 20110411
  Serious: No
  Sender: FDA-Public Use
  Company Number: 315118

PATIENT
  Sex: Male

DRUGS (2)
  1. VICTOZA [Suspect]
     Indication: PRODUCT USED FOR UNKNOWN INDICATION
     Dosage: 1.2 MG, QD, SUBCUTANEOUS ; 0.6, QD, SUBCUTANEOUS
     Route: 058
     Dates: start: 20100301
  2. VICTOZA [Suspect]
     Indication: PRODUCT USED FOR UNKNOWN INDICATION
     Dosage: 1.2 MG, QD, SUBCUTANEOUS ; 0.6, QD, SUBCUTANEOUS
     Route: 058
     Dates: start: 20100701

REACTIONS (1)
  - INJECTION SITE DISCOLOURATION [None]
